FAERS Safety Report 6061024-4 (Version None)
Quarter: 2009Q1

REPORT INFORMATION
  Report Type: 
  Country: None (occurrence: None)
  Receive Date: 20090129
  Receipt Date: 20090129
  Transmission Date: 20090719
  Serious: Yes (Other)
  Sender: FDA-Public Use
  Company Number: None

PATIENT
  Age: 43 Year
  Sex: Female
  Weight: 83.9154 kg

DRUGS (2)
  1. SYNTEST 2.5 MG SYNTHO PHARMACEUTICALS INC [Suspect]
     Indication: HYSTERECTOMY
     Dosage: 2.5 MG  ONCE DAILY PO
     Route: 048
     Dates: start: 20080901, end: 20081101
  2. SYNTEST 2.5 MG SYNTHO PHARMACEUTICALS INC [Suspect]
     Indication: SALPINGO-OOPHORECTOMY
     Dosage: 2.5 MG  ONCE DAILY PO
     Route: 048
     Dates: start: 20080901, end: 20081101

REACTIONS (5)
  - DRUG EFFECT DECREASED [None]
  - HOT FLUSH [None]
  - MENOPAUSAL SYMPTOMS [None]
  - PRODUCT QUALITY ISSUE [None]
  - VULVOVAGINAL DRYNESS [None]
